FAERS Safety Report 4582200-3 (Version None)
Quarter: 2005Q1

REPORT INFORMATION
  Report Type: 
  Country: None (occurrence: None)
  Receive Date: 20050210
  Receipt Date: 20050210
  Transmission Date: 20050727
  Serious: Yes (Other)
  Sender: FDA-Public Use
  Company Number: None

PATIENT
  Sex: Female
  Weight: 65.7716 kg

DRUGS (2)
  1. BOTOX COSMETIC  100 UNITS   ALLERGAN [Suspect]
     Indication: HEADACHE
  2. BOTOX COSMETIC  100 UNITS   ALLERGAN [Suspect]
     Indication: SKIN WRINKLING

REACTIONS (1)
  - PHARMACEUTICAL PRODUCT COMPLAINT [None]
